FAERS Safety Report 23945883 (Version 1)
Quarter: 2024Q2

REPORT INFORMATION
  Report Type: Spontaneous
  Country: FR (occurrence: FR)
  Receive Date: 20240606
  Receipt Date: 20240606
  Transmission Date: 20240715
  Serious: Yes (Life-Threatening)
  Sender: FDA-Public Use
  Company Number: None

PATIENT
  Age: 33 Year
  Sex: Female
  Weight: 90 kg

DRUGS (3)
  1. METFORMIN [Suspect]
     Active Substance: METFORMIN HYDROCHLORIDE
     Indication: Type 2 diabetes mellitus
     Dosage: 2000 MILLIGRAM, QD
     Route: 048
     Dates: end: 20240430
  2. DAPAGLIFLOZIN [Suspect]
     Active Substance: DAPAGLIFLOZIN
     Indication: Type 2 diabetes mellitus
     Dosage: 10 MILLIGRAM, QD
     Route: 048
     Dates: end: 20240430
  3. OZEMPIC [Suspect]
     Active Substance: SEMAGLUTIDE
     Indication: Type 2 diabetes mellitus
     Dosage: 3 MILLIGRAM, QW
     Route: 058
     Dates: end: 20240430

REACTIONS (1)
  - Euglycaemic diabetic ketoacidosis [Recovered/Resolved]

NARRATIVE: CASE EVENT DATE: 20240430
